FAERS Safety Report 12065998 (Version 1)
Quarter: 2016Q1

REPORT INFORMATION
  Report Type: Report from Study
  Country: US (occurrence: US)
  Receive Date: 20160211
  Receipt Date: 20160211
  Transmission Date: 20160526
  Serious: No
  Sender: FDA-Public Use
  Company Number: US-ABBVIE-16K-163-1531513-00

PATIENT
  Age: 55 Year
  Sex: Female

DRUGS (1)
  1. HUMIRA [Suspect]
     Active Substance: ADALIMUMAB
     Indication: RHEUMATOID ARTHRITIS
     Route: 058
     Dates: start: 20150928

REACTIONS (8)
  - Skin discolouration [Unknown]
  - Peripheral swelling [Unknown]
  - Malaise [Unknown]
  - Limb injury [Recovering/Resolving]
  - Tenderness [Unknown]
  - Arthralgia [Recovering/Resolving]
  - Localised infection [Recovering/Resolving]
  - Pain in extremity [Unknown]

NARRATIVE: CASE EVENT DATE: 2015
